FAERS Safety Report 4267859-2 (Version None)
Quarter: 2004Q1

REPORT INFORMATION
  Report Type: 
  Country: None (occurrence: None)
  Receive Date: 20040107
  Receipt Date: 20021203
  Transmission Date: 20041129
  Serious: Yes (Other)
  Sender: FDA-Public Use
  Company Number: WAES 0212USA00299

PATIENT

DRUGS (1)
  1. DECADRON [Suspect]
     Dosage: PO
     Route: 048

REACTIONS (1)
  - DIABETES MELLITUS [None]
